FAERS Safety Report 7141631-8 (Version None)
Quarter: 2010Q4

REPORT INFORMATION
  Report Type: 
  Country: None (occurrence: None)
  Receive Date: 20101207
  Receipt Date: 20101124
  Transmission Date: 20110411
  Serious: Yes (Hospitalization)
  Sender: FDA-Public Use
  Company Number: PHHY2009JP44898

PATIENT
  Sex: Female
  Weight: 42 kg

DRUGS (10)
  1. GLIVEC [Suspect]
     Indication: CHRONIC MYELOID LEUKAEMIA
     Dosage: 400 MG/DAY
     Route: 048
     Dates: start: 20081114, end: 20081208
  2. GLIVEC [Suspect]
     Indication: THROMBOCYTOSIS
     Dosage: 100 MG/DAY
     Route: 048
  3. GLIVEC [Suspect]
     Indication: CHROMOSOME ANALYSIS ABNORMAL
     Dosage: 400 MG/DAY
     Route: 048
     Dates: start: 20090107
  4. FERROUS SULFATE [Concomitant]
     Indication: PLATELET COUNT ABNORMAL
     Dosage: 100 MG
     Route: 048
     Dates: start: 20081017, end: 20091113
  5. ASPIRIN [Concomitant]
     Indication: PLATELET COUNT INCREASED
     Dosage: UNK
     Route: 048
     Dates: start: 20081017, end: 20091208
  6. TIENAM [Concomitant]
     Dosage: 1 G
     Route: 042
     Dates: start: 20081212, end: 20081218
  7. FUNGUARD [Concomitant]
     Indication: PYREXIA
     Dosage: 100 MG
     Dates: start: 20081209, end: 20091215
  8. PRODIF [Concomitant]
     Indication: PYREXIA
     Dosage: 200 MG
     Route: 042
     Dates: start: 20081213, end: 20081218
  9. CRAVIT [Concomitant]
     Indication: PYREXIA
     Dosage: UNK
     Route: 048
     Dates: start: 20081219, end: 20081225
  10. DIFLUCAN [Concomitant]
     Indication: PYREXIA
     Dosage: 100 MG
     Route: 048
     Dates: start: 20081219, end: 20081225

REACTIONS (4)
  - AGRANULOCYTOSIS [None]
  - COUGH [None]
  - FEBRILE NEUTROPENIA [None]
  - RASH GENERALISED [None]
